FAERS Safety Report 4616229-3 (Version None)
Quarter: 2005Q1

REPORT INFORMATION
  Report Type: 
  Country: None (occurrence: None)
  Receive Date: 20050321
  Receipt Date: 20050307
  Transmission Date: 20050727
  Serious: Yes (Hospitalization)
  Sender: FDA-Public Use
  Company Number: 230841K05USA

PATIENT
  Age: 41 Year
  Sex: Female

DRUGS (1)
  1. REBIF [Suspect]
     Indication: MULTIPLE SCLEROSIS
     Dosage: 44 MCG, 3 IN 1 WEEKS, SUBCUTANEOUS
     Route: 058
     Dates: start: 20021221

REACTIONS (6)
  - ASTHENIA [None]
  - BACTERIAL INFECTION [None]
  - CONDITION AGGRAVATED [None]
  - CYSTITIS [None]
  - MULTIPLE SCLEROSIS [None]
  - URINARY RETENTION [None]
